FAERS Safety Report 21984393 (Version 2)
Quarter: 2025Q1

REPORT INFORMATION
  Report Type: Report from Study
  Country: US (occurrence: US)
  Receive Date: 20230213
  Receipt Date: 20250115
  Transmission Date: 20250409
  Serious: No
  Sender: HRA PHARMA
  Company Number: US-ORG100014127-2022000889

PATIENT
  Age: 72 Year
  Sex: Female

DRUGS (16)
  1. LYSODREN [Suspect]
     Active Substance: MITOTANE
     Indication: Adrenal gland cancer
     Dosage: TAKES 6 TABLETS BY MOUTH TWICE DAILY
     Route: 048
     Dates: start: 20220329
  2. LYSODREN [Suspect]
     Active Substance: MITOTANE
     Indication: Adrenal gland cancer
     Dosage: TAKES 2 TABLETS IN THE MORNING AND 3 TABLETS IN THE EVENING
     Route: 048
  3. HYDROCORT TAB 20 MG [Concomitant]
     Indication: Product used for unknown indication
  4. ASPIRIN LOW TAB 81MG EC [Concomitant]
     Indication: Product used for unknown indication
  5. ALLOPURINOL  TAB 300MG [Concomitant]
     Indication: Product used for unknown indication
  6. CLARITIN TAB 10MG [Concomitant]
     Indication: Product used for unknown indication
  7. CLONAZEPAM TAB 0.5MG [Concomitant]
     Indication: Product used for unknown indication
  8. LOSARTAN POT TAB 100MG [Concomitant]
     Indication: Product used for unknown indication
  9. MELOXICAM [Concomitant]
     Active Substance: MELOXICAM
     Indication: Product used for unknown indication
  10. METOPROLOL SUCCINATE [Concomitant]
     Active Substance: METOPROLOL SUCCINATE
     Indication: Product used for unknown indication
  11. MONTELUKAST SODIUM [Concomitant]
     Active Substance: MONTELUKAST SODIUM
     Indication: Product used for unknown indication
  12. OMEPRAZOLE [Concomitant]
     Active Substance: OMEPRAZOLE
     Indication: Product used for unknown indication
  13. PRAVACHOL TAB 20MG [Concomitant]
     Indication: Product used for unknown indication
  14. PREDNISONE [Concomitant]
     Active Substance: PREDNISONE
     Indication: Product used for unknown indication
  15. TRIAMT/HCTZ TAB 75-50MG [Concomitant]
     Indication: Product used for unknown indication
  16. colesevelam tablet 625mg [Concomitant]
     Indication: Product used for unknown indication

REACTIONS (2)
  - Diarrhoea [Recovered/Resolved]
  - Product use complaint [Recovered/Resolved]
